FAERS Safety Report 20923289 (Version 1)
Quarter: 2022Q2

REPORT INFORMATION
  Report Type: Spontaneous
  Country: US (occurrence: US)
  Receive Date: 20220607
  Receipt Date: 20220607
  Transmission Date: 20220721
  Serious: Yes (Death, Hospitalization)
  Sender: FDA-Public Use
  Company Number: US-NOVARTISPH-NVSC2022US130120

PATIENT
  Age: 58 Year
  Sex: Female

DRUGS (2)
  1. ENTRESTO [Suspect]
     Active Substance: SACUBITRIL\VALSARTAN
     Indication: Product used for unknown indication
     Dosage: 1 DOSAGE FORM
     Route: 065
     Dates: end: 20220523
  2. ALDOSTERONE [Suspect]
     Active Substance: ALDOSTERONE
     Indication: Product used for unknown indication
     Dosage: UNK
     Route: 065
     Dates: end: 20220523

REACTIONS (6)
  - Death [Fatal]
  - Cardiac failure chronic [Unknown]
  - Blood creatinine increased [Unknown]
  - Weight decreased [Unknown]
  - Polyuria [Unknown]
  - Dyspnoea [Unknown]
